FAERS Safety Report 5233545-5 (Version None)
Quarter: 2007Q1

REPORT INFORMATION
  Report Type: 
  Country: None (occurrence: None)
  Receive Date: 20061208
  Receipt Date: 20060306
  Transmission Date: 20070707
  Serious: Yes (Other)
  Sender: FDA-Public Use
  Company Number: 2006UW03799

PATIENT
  Age: 59 Year
  Sex: Male
  Weight: 81.646 kg

DRUGS (3)
  1. CRESTOR [Suspect]
     Indication: BLOOD CHOLESTEROL INCREASED
     Dosage: 10 MG DAILY PO
     Route: 048
     Dates: start: 20051201
  2. ZETIA [Concomitant]
  3. DIOVAN [Concomitant]

REACTIONS (2)
  - PAIN [None]
  - WEIGHT LOSS POOR [None]
